FAERS Safety Report 18144929 (Version 1)
Quarter: 2020Q3

REPORT INFORMATION
  Report Type: Spontaneous
  Country: US (occurrence: US)
  Receive Date: 20200813
  Receipt Date: 20200813
  Transmission Date: 20201103
  Serious: Yes (Other)
  Sender: FDA-Public Use
  Company Number: None

PATIENT
  Age: 76 Year
  Sex: Male
  Weight: 100.3 kg

DRUGS (12)
  1. METOPROLOL TARTRATE. [Concomitant]
     Active Substance: METOPROLOL TARTRATE
     Dates: start: 20200801
  2. AMLODIPINE [Concomitant]
     Active Substance: AMLODIPINE BESYLATE
     Dates: start: 20200729
  3. FINASTERIDE. [Concomitant]
     Active Substance: FINASTERIDE
  4. DAPTOMYCIN. [Suspect]
     Active Substance: DAPTOMYCIN
     Indication: CELLULITIS
     Route: 042
     Dates: start: 20200805, end: 20200810
  5. MELATONIN [Concomitant]
     Active Substance: MELATONIN
     Dates: start: 20200731
  6. SORAFENIB [Concomitant]
     Active Substance: SORAFENIB
     Dates: start: 20200806
  7. DECITABINE. [Concomitant]
     Active Substance: DECITABINE
     Dates: start: 20200806, end: 20200810
  8. VALACYCLOVIR [Concomitant]
     Active Substance: VALACYCLOVIR HYDROCHLORIDE
     Dates: start: 20200809
  9. DAPTOMYCIN. [Suspect]
     Active Substance: DAPTOMYCIN
     Indication: CELLULITIS
     Route: 042
     Dates: start: 20200805, end: 20200810
  10. MICAFUNGIN. [Concomitant]
     Active Substance: MICAFUNGIN SODIUM
     Dates: start: 20200809
  11. ALLOPURINOL. [Concomitant]
     Active Substance: ALLOPURINOL
     Dates: start: 20200730
  12. TAMSULOSIN [Concomitant]
     Active Substance: TAMSULOSIN
     Dates: start: 20200730

REACTIONS (3)
  - Infusion related reaction [None]
  - Skin discolouration [None]
  - Chills [None]

NARRATIVE: CASE EVENT DATE: 20200805
